FAERS Safety Report 15041931 (Version 2)
Quarter: 2018Q4

REPORT INFORMATION
  Report Type: Spontaneous
  Country: US (occurrence: US)
  Receive Date: 20180621
  Receipt Date: 20181022
  Transmission Date: 20190204
  Serious: Yes (Other)
  Sender: FDA-Public Use
  Company Number: US-SUN PHARMACEUTICAL INDUSTRIES LTD-2018US-176335

PATIENT
  Age: 32 Year
  Sex: Male

DRUGS (1)
  1. LOPERAMIDE [Suspect]
     Active Substance: LOPERAMIDE
     Indication: PRODUCT USED FOR UNKNOWN INDICATION
     Dosage: 360 MG, QOD
     Route: 065

REACTIONS (5)
  - Constipation [Recovered/Resolved]
  - Drug abuse [Recovered/Resolved]
  - Atrioventricular block first degree [Recovered/Resolved]
  - Sinus rhythm [Recovered/Resolved]
  - QRS axis abnormal [Recovered/Resolved]
